FAERS Safety Report 4574721-4 (Version None)
Quarter: 2005Q1

REPORT INFORMATION
  Report Type: 
  Country: None (occurrence: None)
  Receive Date: 20050208
  Receipt Date: 20040708
  Transmission Date: 20050727
  Serious: No
  Sender: FDA-Public Use
  Company Number: US-GLAXOSMITHKLINE-A0517440A

PATIENT
  Age: 22 Year
  Sex: Male

DRUGS (3)
  1. PAXIL [Suspect]
     Indication: PANIC DISORDER
     Dosage: 40MG PER DAY
     Route: 048
  2. ALPRAZOLAM [Concomitant]
  3. RESTORIL [Concomitant]

REACTIONS (4)
  - HYPERSOMNIA [None]
  - LETHARGY [None]
  - PARAESTHESIA [None]
  - TREMOR [None]
